FAERS Safety Report 6132833-8 (Version None)
Quarter: 2009Q1

REPORT INFORMATION
  Report Type: 
  Country: None (occurrence: None)
  Receive Date: 20090324
  Receipt Date: 20090313
  Transmission Date: 20090719
  Serious: Yes (Hospitalization)
  Sender: FDA-Public Use
  Company Number: 2009-US-0012

PATIENT
  Age: 67 Year
  Sex: Male

DRUGS (10)
  1. SANCUSO [Suspect]
     Indication: PROPHYLAXIS OF NAUSEA AND VOMITING
     Dosage: TRANSDERMAL
     Route: 062
     Dates: start: 20090226
  2. ATENOLOL [Concomitant]
  3. AVODART [Concomitant]
  4. DIGITEK (DIGOXINE) [Concomitant]
  5. FLOMAX [Concomitant]
  6. NEXIUM [Concomitant]
  7. VICODIN HP (ACETAMINOPHEN W/HYDROCODONE BITARTRATE) [Concomitant]
  8. XANAX [Concomitant]
  9. CISPLATIN [Concomitant]
  10. ETOPOSIDE [Concomitant]

REACTIONS (1)
  - SICK SINUS SYNDROME [None]
